FAERS Safety Report 8052761-0 (Version None)
Quarter: 2012Q1

REPORT INFORMATION
  Report Type: 
  Country: None (occurrence: None)
  Receive Date: 20120118
  Receipt Date: 20120110
  Transmission Date: 20120608
  Serious: Yes (Hospitalization)
  Sender: FDA-Public Use
  Company Number: PHEH2012US001075

PATIENT
  Age: 89 Year
  Sex: Female

DRUGS (3)
  1. LANSOPRAZOLE [Concomitant]
     Indication: ACID BASE BALANCE
  2. DIOVAN [Suspect]
     Dosage: UNK
  3. CELEBREX [Concomitant]
     Indication: ARTHRITIS
     Dosage: 200 MG, UNK

REACTIONS (2)
  - ANGINA PECTORIS [None]
  - PALPITATIONS [None]
